FAERS Safety Report 15517140 (Version 1)
Quarter: 2018Q4

REPORT INFORMATION
  Report Type: Spontaneous
  Country: US (occurrence: US)
  Receive Date: 20181011
  Receipt Date: 20181011
  Transmission Date: 20190205
  Serious: No
  Sender: FDA-Public Use
  Company Number: None

PATIENT
  Sex: Female

DRUGS (1)
  1. ENBREL [Suspect]
     Active Substance: ETANERCEPT
     Indication: PSORIASIS
     Dosage: INJECT 50MG SUBCUTANEOUSLY TWO TIMES A WEEK 72-96 HOURS APART FOR 3 MONTHS AS DIRECTED
     Route: 058
     Dates: start: 201805

REACTIONS (2)
  - Inappropriate schedule of product administration [None]
  - Extra dose administered [None]
